FAERS Safety Report 15764584 (Version 1)
Quarter: 2018Q4

REPORT INFORMATION
  Report Type: Report from Study
  Country: CN (occurrence: CN)
  Receive Date: 20181227
  Receipt Date: 20181227
  Transmission Date: 20190205
  Serious: Yes (Hospitalization)
  Sender: FDA-Public Use
  Company Number: CN-ROCHE-2219387

PATIENT
  Age: 54 Year
  Sex: Female
  Weight: 59.5 kg

DRUGS (67)
  1. BEVACIZUMAB. [Suspect]
     Active Substance: BEVACIZUMAB
     Indication: OVARIAN CANCER
     Dosage: DATE OF MOST RECENT DOSE OF BEVACIZUMAB PRIOR TO SAE (LIVER DAMAGE): 24/OCT/2018 AT DOSE 870MG?DATE
     Route: 042
     Dates: start: 20180905
  2. DEXAMETHASONE ACETATE [Concomitant]
     Active Substance: DEXAMETHASONE ACETATE
     Route: 048
     Dates: start: 20180925, end: 20180926
  3. AZASETRON HYDROCHLORIDE [Concomitant]
     Active Substance: AZASETRON HYDROCHLORIDE
     Route: 065
     Dates: start: 20180905, end: 20180905
  4. AZASETRON HYDROCHLORIDE [Concomitant]
     Active Substance: AZASETRON HYDROCHLORIDE
     Route: 065
     Dates: start: 20181122, end: 20181122
  5. SODIUM CHLORIDE. [Concomitant]
     Active Substance: SODIUM CHLORIDE
     Route: 065
     Dates: start: 20181024, end: 20181024
  6. SODIUM CHLORIDE. [Concomitant]
     Active Substance: SODIUM CHLORIDE
     Route: 065
     Dates: start: 20181122, end: 20181122
  7. POTASSIUM CHLORIDE. [Concomitant]
     Active Substance: POTASSIUM CHLORIDE
     Indication: BLOOD POTASSIUM DECREASED
     Dosage: PREVENT LOW POTASSIUM
     Route: 065
     Dates: start: 20180815, end: 20180815
  8. FRAXIPARINE [Concomitant]
     Active Substance: NADROPARIN CALCIUM
     Indication: THROMBOSIS
     Route: 065
     Dates: start: 20180814, end: 20180817
  9. ASTRAGALUS [Concomitant]
     Indication: LEUKOPENIA
     Route: 065
     Dates: start: 20180818
  10. RADIX BUPLEURI [Concomitant]
     Active Substance: HERBALS
     Dosage: LIVER PROTECTION
     Route: 065
  11. AMINO ACID [Concomitant]
     Active Substance: AMINO ACIDS
     Dosage: SUPPLEMENTARY AMINO ACID
     Route: 065
     Dates: start: 20181024, end: 20181024
  12. LANSOPRAZOLE. [Concomitant]
     Active Substance: LANSOPRAZOLE
     Route: 065
     Dates: start: 20180926, end: 20180926
  13. DEXAMETHASONE ACETATE [Concomitant]
     Active Substance: DEXAMETHASONE ACETATE
     Route: 065
     Dates: start: 20181121, end: 20181122
  14. LANSOPRAZOLE. [Concomitant]
     Active Substance: LANSOPRAZOLE
     Dosage: PREVENT STOMACH INJURY
     Route: 065
     Dates: start: 20180905, end: 20180905
  15. POTASSIUM CHLORIDE. [Concomitant]
     Active Substance: POTASSIUM CHLORIDE
     Route: 065
     Dates: start: 20181122, end: 20181122
  16. IRON POLYSACCHARIDE [Concomitant]
     Route: 065
     Dates: start: 20180904
  17. CALCIUM GLUCONATE. [Concomitant]
     Active Substance: CALCIUM GLUCONATE
     Indication: HYPOCALCAEMIA
     Dosage: PREVENTION OF HYPOCALCEMIA
     Route: 065
     Dates: start: 20180815, end: 20180815
  18. DEXAMETHASONE SODIUM PHOSPHATE. [Concomitant]
     Active Substance: DEXAMETHASONE SODIUM PHOSPHATE
     Indication: HYPERSENSITIVITY
     Dosage: PREVENT ALLERGIC REACTION
     Route: 065
     Dates: start: 20180905, end: 20180905
  19. CALCIUM CARBONATE. [Concomitant]
     Active Substance: CALCIUM CARBONATE
     Indication: MINERAL SUPPLEMENTATION
     Route: 065
     Dates: start: 20180818
  20. VITAMIN D3 [Concomitant]
     Active Substance: CHOLECALCIFEROL
     Indication: MINERAL SUPPLEMENTATION
     Route: 065
     Dates: start: 20180818
  21. PIG BILE [Concomitant]
     Dosage: LIVER PROTECTION
     Route: 065
  22. BICYCLOL [Concomitant]
     Active Substance: BICYCLOL
     Dosage: LIVER PROTECTION
     Route: 065
     Dates: start: 20180912
  23. VITAMIN C [Concomitant]
     Active Substance: ASCORBIC ACID
     Dosage: SUPPLEMENT NUTRITION
     Route: 065
     Dates: start: 20180926, end: 20180926
  24. THROMBOPOIETIN [Concomitant]
     Active Substance: THROMBOPOIETIN
     Indication: THROMBOCYTOPENIA
     Route: 065
     Dates: start: 20181013, end: 20181021
  25. ESTAZOLAM. [Concomitant]
     Active Substance: ESTAZOLAM
     Route: 065
     Dates: start: 20181024, end: 20181024
  26. RECOMBINANT HUMAN INTERLEUKIN-11 [Concomitant]
     Active Substance: OPRELVEKIN
     Route: 065
     Dates: start: 20181204, end: 20181217
  27. PACLITAXEL. [Suspect]
     Active Substance: PACLITAXEL
     Indication: OVARIAN CANCER
     Dosage: DATE OF MOST RECENT DOSE OF PACLITAXEL PRIOR TO AE AND SAE (LIVER DAMAGE) ONSET 24/OCT/2018?DOSE OF
     Route: 042
     Dates: start: 20180815
  28. DEXAMETHASONE ACETATE [Concomitant]
     Active Substance: DEXAMETHASONE ACETATE
     Route: 065
     Dates: start: 20181023, end: 20181023
  29. LANSOPRAZOLE. [Concomitant]
     Active Substance: LANSOPRAZOLE
     Indication: GASTROINTESTINAL INJURY
     Dosage: PREVENT STOMACH INJURY
     Route: 065
     Dates: start: 20180815, end: 20180815
  30. LANSOPRAZOLE. [Concomitant]
     Active Substance: LANSOPRAZOLE
     Route: 065
     Dates: start: 20181122, end: 20181122
  31. CALCIUM GLUCONATE. [Concomitant]
     Active Substance: CALCIUM GLUCONATE
     Route: 065
     Dates: start: 20180905, end: 20180905
  32. CALCIUM GLUCONATE. [Concomitant]
     Active Substance: CALCIUM GLUCONATE
     Route: 065
     Dates: start: 20181025, end: 20181025
  33. EPIMEDIUM [Concomitant]
     Indication: LEUKOPENIA
     Route: 065
     Dates: start: 20180818
  34. RIVAROXABAN [Concomitant]
     Active Substance: RIVAROXABAN
     Route: 065
     Dates: start: 20180818, end: 20181023
  35. LACTULOSE. [Concomitant]
     Active Substance: LACTULOSE
     Indication: CONSTIPATION
     Route: 048
     Dates: start: 20180907, end: 20180907
  36. AMIFOSTINE. [Concomitant]
     Active Substance: AMIFOSTINE
     Dosage: PREVENT CELL MEMBRANE DAMAGE
     Route: 065
     Dates: start: 20180926, end: 20180926
  37. COMPOUND GLYCYRRHIZIN (UNK INGREDIENTS) [Concomitant]
     Route: 065
     Dates: start: 20181120, end: 20181123
  38. RECOMBINANT HUMAN INTERLEUKIN-11 [Concomitant]
     Active Substance: OPRELVEKIN
     Indication: THROMBOCYTOPENIA
     Route: 065
     Dates: start: 20181112, end: 20181114
  39. PLACEBO [Suspect]
     Active Substance: UNSPECIFIED INGREDIENT
     Indication: OVARIAN CANCER
     Dosage: DATE OF MOST RECENT DOSE OF ATEZOLIZUMAB/PLACEBO PRIOR TO AE AND SAE ONSET 24/OCT/2018
     Route: 042
     Dates: start: 20180815
  40. DEXAMETHASONE ACETATE [Concomitant]
     Active Substance: DEXAMETHASONE ACETATE
     Route: 048
     Dates: start: 20180904, end: 20180905
  41. LANSOPRAZOLE. [Concomitant]
     Active Substance: LANSOPRAZOLE
     Route: 065
     Dates: start: 20181024, end: 20181024
  42. DEXAMETHASONE SODIUM PHOSPHATE. [Concomitant]
     Active Substance: DEXAMETHASONE SODIUM PHOSPHATE
     Route: 065
     Dates: start: 20181024, end: 20181024
  43. VITAMIN B6 [Concomitant]
     Active Substance: PYRIDOXINE HYDROCHLORIDE
     Dosage: SUPPLEMENT NUTRITION
     Route: 065
     Dates: start: 20180926, end: 20180926
  44. LEUCOGEN (CHINA) [Concomitant]
     Indication: THROMBOCYTOPENIA
     Route: 065
     Dates: start: 20181012
  45. ESTAZOLAM. [Concomitant]
     Active Substance: ESTAZOLAM
     Route: 065
     Dates: start: 20181122, end: 20181122
  46. DEXAMETHASONE ACETATE [Concomitant]
     Active Substance: DEXAMETHASONE ACETATE
     Indication: HYPERSENSITIVITY
     Dosage: PREVENT ALLERGIC REACTION
     Route: 048
     Dates: start: 20180814, end: 20180815
  47. SODIUM CHLORIDE. [Concomitant]
     Active Substance: SODIUM CHLORIDE
     Indication: VOMITING
     Dosage: PREVENT VOMITING
     Route: 065
     Dates: start: 20180815, end: 20180815
  48. JUJUBE [Concomitant]
     Indication: LEUKOPENIA
     Route: 065
     Dates: start: 20180818
  49. SOPHORA FLAVESCENS [Concomitant]
     Indication: LEUKOPENIA
     Route: 065
     Dates: start: 20180818
  50. AZASETRON HYDROCHLORIDE [Concomitant]
     Active Substance: AZASETRON HYDROCHLORIDE
     Indication: VOMITING
     Dosage: PREVENT VOMITING
     Route: 065
     Dates: start: 20180815, end: 20180815
  51. AZASETRON HYDROCHLORIDE [Concomitant]
     Active Substance: AZASETRON HYDROCHLORIDE
     Route: 065
     Dates: start: 20181024, end: 20181024
  52. SODIUM CHLORIDE. [Concomitant]
     Active Substance: SODIUM CHLORIDE
     Route: 065
     Dates: start: 20180905, end: 20180905
  53. POTASSIUM CHLORIDE. [Concomitant]
     Active Substance: POTASSIUM CHLORIDE
     Route: 065
     Dates: start: 20180926, end: 20180926
  54. IRON POLYSACCHARIDE [Concomitant]
     Indication: ANAEMIA
     Route: 065
     Dates: start: 20180804, end: 20180830
  55. POVIDONE-IODINE. [Concomitant]
     Active Substance: POVIDONE-IODINE
     Indication: CENTRAL VENOUS CATHETERISATION
     Dosage: PICC INTUBATION
     Route: 065
     Dates: start: 20180815, end: 20180815
  56. RADIX ISATIDIS [Concomitant]
     Dosage: LIVER PROTECTION
     Route: 065
  57. AMIFOSTINE. [Concomitant]
     Active Substance: AMIFOSTINE
     Route: 065
     Dates: start: 20181024, end: 20181024
  58. GLYCERIN. [Concomitant]
     Active Substance: GLYCERIN
     Indication: CONSTIPATION
     Route: 065
     Dates: start: 20180908, end: 20180908
  59. CARBOPLATIN. [Suspect]
     Active Substance: CARBOPLATIN
     Indication: OVARIAN CANCER
     Dosage: DATE OF MOST RECENT DOSE OF CARBOPLATIN PRIOR TO AE AND SAE (LIVER DAMAGE) ONSET 24/OCT/2018?DOSE OF
     Route: 042
     Dates: start: 20180815
  60. AZASETRON HYDROCHLORIDE [Concomitant]
     Active Substance: AZASETRON HYDROCHLORIDE
     Route: 065
     Dates: start: 20180926, end: 20180926
  61. POTASSIUM CHLORIDE. [Concomitant]
     Active Substance: POTASSIUM CHLORIDE
     Route: 065
     Dates: start: 20180905, end: 20180905
  62. POTASSIUM CHLORIDE. [Concomitant]
     Active Substance: POTASSIUM CHLORIDE
     Route: 065
     Dates: start: 20181024, end: 20181024
  63. LIDOCAINE HYDROCHLORIDE. [Concomitant]
     Active Substance: LIDOCAINE HYDROCHLORIDE
     Indication: CENTRAL VENOUS CATHETERISATION
     Dosage: PICC INCUBATION
     Route: 065
     Dates: start: 20180815, end: 20180815
  64. BLOOD GINSENG [Concomitant]
     Indication: LEUKOPENIA
     Route: 065
     Dates: start: 20180818
  65. MUNG BEAN. [Concomitant]
     Active Substance: MUNG BEAN
     Dosage: LIVER PROTECTION
     Route: 065
  66. FERROUS LACTATE [Concomitant]
     Active Substance: FERROUS LACTATE
     Indication: ANAEMIA
     Route: 065
     Dates: start: 20180831, end: 20180904
  67. INVERT SUGAR [Concomitant]
     Active Substance: INVERT SUGAR
     Route: 065
     Dates: start: 20181024, end: 20181024

REACTIONS (2)
  - Neutrophil count decreased [Recovered/Resolved]
  - Liver injury [Recovered/Resolved]

NARRATIVE: CASE EVENT DATE: 20181109
